FAERS Safety Report 4288950-0 (Version None)
Quarter: 2004Q1

REPORT INFORMATION
  Report Type: 
  Country: None (occurrence: None)
  Receive Date: 20040206
  Receipt Date: 20040127
  Transmission Date: 20041129
  Serious: Yes (Death, Other)
  Sender: FDA-Public Use
  Company Number: 2004196429US

PATIENT
  Age: 70 Year
  Sex: Female

DRUGS (4)
  1. DELTASONE [Suspect]
     Indication: LYMPHOMA
     Dosage: ORAL
     Route: 048
  2. RED BLOOD CELLS [Concomitant]
  3. CHLORAMBUCIL (CHLORAMBUCIL) [Concomitant]
  4. RITUXIMAB (RITUXIMAB) [Concomitant]

REACTIONS (11)
  - AMPUTATION [None]
  - CANDIDIASIS [None]
  - DIABETES MELLITUS INADEQUATE CONTROL [None]
  - DISEASE RECURRENCE [None]
  - GANGRENE [None]
  - HAEMOLYSIS [None]
  - MULTI-ORGAN FAILURE [None]
  - PERIPHERAL ISCHAEMIA [None]
  - PNEUMONIA [None]
  - SEPSIS [None]
  - URINARY TRACT INFECTION [None]
